FAERS Safety Report 15764621 (Version 1)
Quarter: 2018Q4

REPORT INFORMATION
  Report Type: Report from Study
  Country: None (occurrence: BR)
  Receive Date: 20181227
  Receipt Date: 20181227
  Transmission Date: 20190205
  Serious: Yes (Other)
  Sender: FDA-Public Use
  Company Number: BR-ABBVIE-18K-020-2601889-00

PATIENT
  Sex: Female
  Weight: 53 kg

DRUGS (5)
  1. SANADOR SINUS [Concomitant]
     Indication: THROMBOSIS
  2. SANADOR SINUS [Concomitant]
     Indication: CEREBROVASCULAR ACCIDENT
  3. HUMIRA [Suspect]
     Active Substance: ADALIMUMAB
     Route: 058
     Dates: start: 20181210
  4. ACETYLSALICYLIC ACID [Concomitant]
     Active Substance: ASPIRIN
     Indication: BLOOD DISORDER PROPHYLAXIS
  5. HUMIRA [Suspect]
     Active Substance: ADALIMUMAB
     Indication: RHEUMATOID ARTHRITIS
     Route: 058
     Dates: start: 20130102

REACTIONS (6)
  - Weight increased [Unknown]
  - Aneurysm [Recovered/Resolved]
  - Injection site discolouration [Unknown]
  - Injection site bruising [Unknown]
  - Arthralgia [Not Recovered/Not Resolved]
  - Therapeutic response shortened [Unknown]
